FAERS Safety Report 6299128-3 (Version None)
Quarter: 2009Q3

REPORT INFORMATION
  Report Type: 
  Country: None (occurrence: None)
  Receive Date: 20090806
  Receipt Date: 20090729
  Transmission Date: 20100115
  Serious: Yes (Other)
  Sender: FDA-Public Use
  Company Number: KR-BAYER-200927025GPV

PATIENT
  Age: 49 Year
  Sex: Male

DRUGS (4)
  1. LEVITRA [Suspect]
     Indication: ERECTILE DYSFUNCTION
     Dosage: TOTAL DAILY DOSE: 10 MG
     Route: 048
     Dates: start: 20090601, end: 20090601
  2. LEVITRA [Suspect]
     Dosage: TOTAL DAILY DOSE: 10 MG
     Route: 048
     Dates: start: 20090701, end: 20090701
  3. LEVITRA [Suspect]
     Dosage: TOTAL DAILY DOSE: 10 MG
     Route: 048
     Dates: start: 20090728, end: 20090728
  4. NORVASC [Concomitant]
     Indication: HYPERTENSION

REACTIONS (2)
  - BLINDNESS TRANSIENT [None]
  - VISUAL IMPAIRMENT [None]
